FAERS Safety Report 12025019 (Version 1)
Quarter: 2016Q1

REPORT INFORMATION
  Report Type: Report from Study
  Country: US (occurrence: US)
  Receive Date: 20160206
  Receipt Date: 20160206
  Transmission Date: 20160526
  Serious: No
  Sender: FDA-Public Use
  Company Number: US-ABBVIE-15K-163-1481653-00

PATIENT
  Age: 47 Year
  Sex: Female

DRUGS (1)
  1. HUMIRA [Suspect]
     Active Substance: ADALIMUMAB
     Indication: PSORIATIC ARTHROPATHY
     Route: 065
     Dates: start: 20150911, end: 20151013

REACTIONS (4)
  - Dyspnoea [Not Recovered/Not Resolved]
  - Injection site rash [Unknown]
  - Injection site bruising [Unknown]
  - Injection site irritation [Unknown]

NARRATIVE: CASE EVENT DATE: 2015
